FAERS Safety Report 5154235-3 (Version None)
Quarter: 2006Q4

REPORT INFORMATION
  Report Type: 
  Country: None (occurrence: None)
  Receive Date: 20061114
  Receipt Date: 20061027
  Transmission Date: 20070319
  Serious: Yes (Hospitalization)
  Sender: FDA-Public Use
  Company Number: ACO_0280_2006

PATIENT
  Age: 59 Year
  Sex: Male
  Weight: 48 kg

DRUGS (12)
  1. TERNELIN [Suspect]
     Indication: BRAIN NEOPLASM
     Dosage: 1 MG TID PO
     Route: 048
     Dates: start: 20060801, end: 20060929
  2. TERNELIN [Suspect]
     Indication: BRAIN NEOPLASM
     Dosage: DF UNK PO
     Route: 048
     Dates: start: 20061010
  3. PARIET [Suspect]
     Indication: GASTRIC ULCER
     Dosage: 10 MG QDAY PO
     Route: 048
     Dates: start: 20060914, end: 20061016
  4. MUCODYNE [Suspect]
     Indication: LUNG NEOPLASM MALIGNANT
     Dosage: 1500 MG QDAY PO
     Route: 048
     Dates: start: 20060911
  5. MUCODYNE [Suspect]
     Dosage: DF UNK PO
     Route: 048
     Dates: start: 20061010
  6. TS 1 [Suspect]
     Indication: LUNG NEOPLASM MALIGNANT
     Dosage: 50 MG BID PO
     Route: 048
     Dates: start: 20060927, end: 20060929
  7. IOPAMIRON [Suspect]
     Dosage: DF UNK IV
     Route: 042
     Dates: start: 20060911
  8. NEUROTROPIN [Suspect]
     Indication: BRAIN NEOPLASM
     Dosage: 16 IU QDAY IV
     Route: 042
     Dates: start: 20060801
  9. CODEINE PHOSPHATE [Suspect]
     Indication: LUNG NEOPLASM MALIGNANT
     Dosage: 60 MG QDAY PO
     Route: 048
     Dates: start: 20060914
  10. BETAMETHASONE SODIUM PHOSPHATE [Suspect]
     Dosage: DF UNK PO
     Route: 048
     Dates: end: 20060929
  11. BETAMETHASONE SODIUM PHOSPHATE [Suspect]
     Dosage: DF UNK PO
     Route: 048
     Dates: start: 20061010
  12. ANTICANCER DRUG [Concomitant]

REACTIONS (3)
  - BLOOD ALKALINE PHOSPHATASE INCREASED [None]
  - CONDITION AGGRAVATED [None]
  - GAMMA-GLUTAMYLTRANSFERASE INCREASED [None]
